FAERS Safety Report 8154727-9 (Version None)
Quarter: 2012Q1

REPORT INFORMATION
  Report Type: 
  Country: None (occurrence: None)
  Receive Date: 20120221
  Receipt Date: 20120208
  Transmission Date: 20120608
  Serious: Yes (Hospitalization)
  Sender: FDA-Public Use
  Company Number: PHEH2012US003442

PATIENT
  Sex: Male

DRUGS (12)
  1. PANTOPRAZOLE [Concomitant]
     Dosage: 20 MG, UNK
  2. TEMSIROLIMUS [Concomitant]
     Dosage: 10 MG, UNK
  3. LASIX [Concomitant]
     Dosage: 40 MG, UNK
  4. IMODIUM MULTI-SYMPTOM RELIEF [Concomitant]
     Dosage: 2 MG, UNK
  5. KLOR-CON [Concomitant]
     Dosage: 10 MEQ, UNK
  6. VITAMIN B-12 [Concomitant]
     Dosage: 500 UG, UNK
  7. LOVAZA [Concomitant]
     Dosage: 1000 MG, UNK
  8. GLEEVEC [Suspect]
     Dosage: 400 MG, UNK
     Route: 048
  9. XOPENEX [Concomitant]
     Dosage: 0.63 MG, UNK
  10. DIGOXIN [Concomitant]
     Dosage: 0.25 MG, UNK
  11. FERROUS SULFATE TAB [Concomitant]
     Dosage: 325 MG, UNK
  12. ACETAMINOPHEN [Concomitant]
     Dosage: 500 MG, UNK

REACTIONS (3)
  - RENAL DISORDER [None]
  - SCLERODERMA [None]
  - CARDIAC DISORDER [None]
